FAERS Safety Report 22202168 (Version 13)
Quarter: 2025Q2

REPORT INFORMATION
  Report Type: Spontaneous
  Country: US (occurrence: US)
  Receive Date: 20230412
  Receipt Date: 20250624
  Transmission Date: 20250716
  Serious: Yes (Death, Hospitalization, Other)
  Sender: PFIZER
  Company Number: US-PFIZER INC-PV202300066559

PATIENT
  Age: 66 Year
  Sex: Male

DRUGS (2)
  1. XALKORI [Suspect]
     Active Substance: CRIZOTINIB
     Indication: Lung carcinoma cell type unspecified stage I
     Dosage: 250 MG, 2X/DAY
     Route: 048
     Dates: start: 202209
  2. XALKORI [Suspect]
     Active Substance: CRIZOTINIB
     Dosage: 250 MG, 2X/DAY (TAKE ONE CAPSULE EVERY 12 HOURS)

REACTIONS (10)
  - Death [Fatal]
  - Cerebrovascular accident [Not Recovered/Not Resolved]
  - Lung carcinoma cell type unspecified stage I [Unknown]
  - Malignant neoplasm progression [Unknown]
  - Diarrhoea [Recovering/Resolving]
  - Fatigue [Unknown]
  - Therapeutic response unexpected [Unknown]
  - Insomnia [Unknown]
  - Weight increased [Unknown]
  - Confusional state [Unknown]

NARRATIVE: CASE EVENT DATE: 20220901
